FAERS Safety Report 11613469 (Version 3)
Quarter: 2015Q4

REPORT INFORMATION
  Report Type: Spontaneous
  Country: FI (occurrence: FI)
  Receive Date: 20151008
  Receipt Date: 20151028
  Transmission Date: 20160304
  Serious: Yes (Disabling, Other)
  Sender: FDA-Public Use
  Company Number: FI-ABBVIE-15P-055-1475474-00

PATIENT
  Age: 29 Year
  Sex: Female

DRUGS (7)
  1. HUMIRA [Suspect]
     Active Substance: ADALIMUMAB
     Route: 058
     Dates: start: 200605, end: 20060818
  2. HEINIX [Concomitant]
     Active Substance: CETIRIZINE HYDROCHLORIDE
     Indication: PRODUCT USED FOR UNKNOWN INDICATION
     Route: 048
  3. HUMIRA [Suspect]
     Active Substance: ADALIMUMAB
     Indication: COLITIS ULCERATIVE
     Route: 058
     Dates: start: 20060509, end: 20060509
  4. KALCIPOS D3 [Concomitant]
     Indication: PRODUCT USED FOR UNKNOWN INDICATION
     Route: 048
  5. FOLVITE [Concomitant]
     Active Substance: FOLIC ACID
     Indication: VITAMIN SUPPLEMENTATION
     Dosage: AFTER TREXAN
     Route: 048
  6. TREXAN [Concomitant]
     Active Substance: METHOTREXATE SODIUM
     Indication: COLITIS ULCERATIVE
     Route: 048
  7. PREDNISON [Concomitant]
     Active Substance: PREDNISONE
     Indication: COLITIS ULCERATIVE
     Route: 048

REACTIONS (8)
  - Wound [Unknown]
  - Demyelination [Unknown]
  - Visual acuity reduced [Unknown]
  - Dry eye [Unknown]
  - Enterostomy [Unknown]
  - Blood immunoglobulin G increased [Unknown]
  - Stoma site ulcer [Unknown]
  - Pyoderma gangrenosum [Unknown]

NARRATIVE: CASE EVENT DATE: 2006
